FAERS Safety Report 16245760 (Version 1)
Quarter: 2019Q2

REPORT INFORMATION
  Report Type: Spontaneous
  Country: US (occurrence: US)
  Receive Date: 20190426
  Receipt Date: 20190426
  Transmission Date: 20190711
  Serious: Yes (Life-Threatening, Other)
  Sender: FDA-Public Use
  Company Number: US-FRESENIUS KABI-FK201904903

PATIENT
  Age: 27 Year
  Sex: Female

DRUGS (1)
  1. HYDRALAZINE [Suspect]
     Active Substance: HYDRALAZINE HYDROCHLORIDE
     Indication: PRE-ECLAMPSIA
     Dosage: UNKNOWN
     Route: 042

REACTIONS (5)
  - Cardiac arrest [Recovered/Resolved]
  - Supraventricular tachycardia [Recovered/Resolved]
  - Foetal heart rate abnormal [Recovered/Resolved]
  - Exposure during pregnancy [Recovered/Resolved]
  - Condition aggravated [Recovered/Resolved]
